FAERS Safety Report 6942119-7 (Version None)
Quarter: 2010Q3

REPORT INFORMATION
  Report Type: 
  Country: None (occurrence: None)
  Receive Date: 20100826
  Receipt Date: 20100819
  Transmission Date: 20110219
  Serious: Yes (Disabling)
  Sender: FDA-Public Use
  Company Number: AU-ASTRAZENECA-2010SE39064

PATIENT
  Age: 64 Year
  Sex: Male

DRUGS (1)
  1. SYMBICORT [Suspect]
     Dosage: 200 MG, UNKNOWN DOSE WITH UNKNOWN FREQUENCY
     Route: 055
     Dates: start: 20100726, end: 20100727

REACTIONS (4)
  - HEADACHE [None]
  - MUSCLE TWITCHING [None]
  - NAUSEA [None]
  - PALPITATIONS [None]
